FAERS Safety Report 20214850 (Version 10)
Quarter: 2024Q4

REPORT INFORMATION
  Report Type: Spontaneous
  Country: US (occurrence: US)
  Receive Date: 20211222
  Receipt Date: 20241011
  Transmission Date: 20250114
  Serious: Yes (Hospitalization, Other)
  Sender: NOVARTIS
  Company Number: US-NOVARTISTESTPH-NVSC2021US292535

PATIENT
  Age: 63 Year
  Sex: Male

DRUGS (20)
  1. TAFINLAR [Interacting]
     Active Substance: DABRAFENIB MESYLATE
     Indication: Neoplasm malignant
     Dosage: 75 MG, Q12H
     Route: 048
     Dates: start: 202107
  2. TAFINLAR [Interacting]
     Active Substance: DABRAFENIB MESYLATE
     Dosage: 75 MG, BID
     Route: 048
     Dates: start: 20210728
  3. TAFINLAR [Interacting]
     Active Substance: DABRAFENIB MESYLATE
     Dosage: 150 MG, Q12H
     Route: 065
  4. TAFINLAR [Interacting]
     Active Substance: DABRAFENIB MESYLATE
     Dosage: UNK
     Route: 048
     Dates: start: 202106
  5. TAFINLAR [Interacting]
     Active Substance: DABRAFENIB MESYLATE
     Dosage: 150 MG, Q12H
     Route: 048
     Dates: start: 202207
  6. MEKINIST [Suspect]
     Active Substance: TRAMETINIB DIMETHYL SULFOXIDE
     Indication: Neoplasm malignant
     Dosage: 1 MG, QD
     Route: 048
     Dates: start: 202107
  7. MEKINIST [Suspect]
     Active Substance: TRAMETINIB DIMETHYL SULFOXIDE
     Dosage: 1 MG, QD
     Route: 048
     Dates: start: 20210728
  8. MEKINIST [Suspect]
     Active Substance: TRAMETINIB DIMETHYL SULFOXIDE
     Dosage: 2 MG, QD
     Route: 065
  9. MEKINIST [Suspect]
     Active Substance: TRAMETINIB DIMETHYL SULFOXIDE
     Dosage: UNK
     Route: 048
     Dates: start: 202106
  10. MEKINIST [Suspect]
     Active Substance: TRAMETINIB DIMETHYL SULFOXIDE
     Dosage: 2 MG, QD (2 MG STRENGTH)
     Route: 048
     Dates: start: 202207
  11. CLOPIDOGREL BISULFATE [Concomitant]
     Active Substance: CLOPIDOGREL BISULFATE
     Indication: Product used for unknown indication
     Dosage: UNK
     Route: 065
  12. DECADRON [Concomitant]
     Active Substance: DEXAMETHASONE
     Indication: Product used for unknown indication
     Dosage: 1 DOSAGE FORM, Q12H
     Route: 048
     Dates: start: 20221013
  13. ACETAMINOPHEN [Concomitant]
     Active Substance: ACETAMINOPHEN
     Indication: Pain
     Dosage: 1000 MG, Q6H (AS NEEDED)
     Route: 048
     Dates: start: 20220311
  14. CORTEF [Concomitant]
     Active Substance: HYDROCORTISONE
     Indication: Product used for unknown indication
     Dosage: 30 MG, BID (2 TABLET (20MG) IN THE MORNING AND 1 TABLET (10 MG) IN THE AFTERNOON)
     Route: 065
     Dates: start: 20221013
  15. DOCUSATE SODIUM [Concomitant]
     Active Substance: DOCUSATE SODIUM
     Indication: Product used for unknown indication
     Dosage: UNK, QD (1-2 CAPSULE)
     Route: 048
     Dates: start: 20220427
  16. DRONABINOL [Concomitant]
     Active Substance: DRONABINOL
     Indication: Product used for unknown indication
     Dosage: 1 DOSAGE FORM, BID (BEFORE MEALS) PALLIATIVE CARE EXMPT
     Route: 048
     Dates: start: 20220902
  17. FLOVENT HFA [Concomitant]
     Active Substance: FLUTICASONE PROPIONATE
     Indication: Product used for unknown indication
     Dosage: UNK, BID (INHALE TWO PUFFS BY MOUNT TWICE DAILY)
     Route: 065
     Dates: start: 20211223, end: 20221014
  18. ONDANSETRON [Concomitant]
     Active Substance: ONDANSETRON
     Indication: Nausea
     Dosage: 1 DOSAGE FORM, Q8H
     Route: 048
     Dates: start: 20220711
  19. OXYCODONE [Concomitant]
     Active Substance: OXYCODONE
     Indication: Pain
     Dosage: UNK, Q4H (TAKE 1-2 TABLETS BY MOUTH EVERY 4 HOURS  AS NEEDED)
     Route: 048
     Dates: start: 20220930
  20. POLYETHYLENE GLYCOL [Concomitant]
     Active Substance: POLYETHYLENE GLYCOL
     Indication: Product used for unknown indication
     Dosage: 17 G (TAKE 17 G BY MOUTH DAILY MIX INTO 4-8 OZ OF JUICE OR WATER)
     Route: 048
     Dates: start: 20220807

REACTIONS (17)
  - Coronary artery occlusion [Unknown]
  - Confusional state [Unknown]
  - Disorientation [Unknown]
  - Frequent bowel movements [Unknown]
  - Constipation [Unknown]
  - Metastases to central nervous system [Unknown]
  - Heart rate decreased [Unknown]
  - Eating disorder [Unknown]
  - Cognitive disorder [Unknown]
  - Hypoaesthesia [Unknown]
  - Drug interaction [Unknown]
  - Blood albumin increased [Unknown]
  - Gastrointestinal disorder [Unknown]
  - Arthralgia [Unknown]
  - Erythema [Unknown]
  - Peripheral swelling [Unknown]
  - Sinusitis [Unknown]

NARRATIVE: CASE EVENT DATE: 20220807
